FAERS Safety Report 9175306 (Version 5)
Quarter: 2013Q4

REPORT INFORMATION
  Report Type: Spontaneous
  Country: US (occurrence: US)
  Receive Date: 20130320
  Receipt Date: 20131217
  Transmission Date: 20140711
  Serious: Yes (Hospitalization, Other)
  Sender: FDA-Public Use
  Company Number: US-MERCK-1303USA009103

PATIENT
  Sex: Female
  Weight: 51.7 kg

DRUGS (7)
  1. FOSAMAX [Suspect]
     Indication: OSTEOPENIA
     Dosage: 10 MG, QD
     Route: 048
     Dates: start: 199601, end: 200110
  2. FOSAMAX [Suspect]
     Dosage: 70 MG, QW
     Route: 048
     Dates: start: 200111, end: 200802
  3. ALENDRONATE SODIUM [Suspect]
     Indication: OSTEOPENIA
     Dosage: 70 MG, QW
     Route: 048
     Dates: start: 200803, end: 200907
  4. VITAMINS (UNSPECIFIED) [Concomitant]
     Dosage: 1 DF, QD
     Dates: start: 1998
  5. CALCIUM (UNSPECIFIED) [Concomitant]
     Dosage: 600 MG, UNK
     Dates: start: 2000
  6. VITAMIN D (UNSPECIFIED) [Concomitant]
     Dosage: 400 IU, UNK
     Dates: start: 2000
  7. OMEGA-3 MARINE TRIGLYCERIDES [Concomitant]
     Dosage: 1 DF, QD
     Dates: start: 1998

REACTIONS (28)
  - Femur fracture [Unknown]
  - Intramedullary rod insertion [Unknown]
  - Intramedullary rod insertion [Unknown]
  - Intramedullary rod insertion [Unknown]
  - Bone graft [Unknown]
  - Hip arthroplasty [Unknown]
  - Open reduction of fracture [Unknown]
  - Medical device removal [Unknown]
  - Hip arthroplasty [Unknown]
  - Tibia fracture [Unknown]
  - Femur fracture [Unknown]
  - Fracture nonunion [Unknown]
  - Device difficult to use [Unknown]
  - Hypercholesterolaemia [Unknown]
  - Hyperkalaemia [Unknown]
  - Osteoporosis [Unknown]
  - Blister [Recovered/Resolved]
  - Vulvitis [Unknown]
  - Colon adenoma [Unknown]
  - Tonsillectomy [Unknown]
  - Rotator cuff syndrome [Unknown]
  - Neuritis [Unknown]
  - Muscle strain [Unknown]
  - Cellulitis [Unknown]
  - Sleep disorder [Unknown]
  - Muscle atrophy [Unknown]
  - Foot fracture [Unknown]
  - Fibula fracture [Unknown]
